FAERS Safety Report 25861557 (Version 1)
Quarter: 2025Q3

REPORT INFORMATION
  Report Type: Report from Study
  Country: US (occurrence: US)
  Receive Date: 20250930
  Receipt Date: 20250930
  Transmission Date: 20251020
  Serious: Yes (Other)
  Sender: JOHNSON AND JOHNSON
  Company Number: US-JNJFOC-20250935107

PATIENT

DRUGS (4)
  1. TOLODODEKIN ALFA [Suspect]
     Active Substance: TOLODODEKIN ALFA
     Indication: Plasma cell myeloma
     Route: 058
  2. LENALIDOMIDE [Suspect]
     Active Substance: LENALIDOMIDE
     Indication: Plasma cell myeloma
     Route: 048
  3. IXAZOMIB [Suspect]
     Active Substance: IXAZOMIB
     Indication: Plasma cell myeloma
     Route: 048
  4. DEXAMETHASONE [Suspect]
     Active Substance: DEXAMETHASONE
     Indication: Plasma cell myeloma
     Route: 065

REACTIONS (7)
  - Neutropenia [Unknown]
  - Thrombocytopenia [Unknown]
  - Syncope [Unknown]
  - Neuropathy peripheral [Unknown]
  - Anaemia [Unknown]
  - Infection [Unknown]
  - Intentional product use issue [Unknown]
